FAERS Safety Report 16234315 (Version 1)
Quarter: 2019Q2

REPORT INFORMATION
  Report Type: Spontaneous
  Country: FR (occurrence: FR)
  Receive Date: 20190424
  Receipt Date: 20190424
  Transmission Date: 20190711
  Serious: Yes (Other)
  Sender: FDA-Public Use
  Company Number: FR-MYLANLABS-2019M1037032

PATIENT
  Age: 74 Year
  Sex: Male

DRUGS (3)
  1. PACLITAXEL KABI [Suspect]
     Active Substance: PACLITAXEL
     Indication: NON-SMALL CELL LUNG CANCER
     Dosage: 133 MILLIGRAM, CYCLE
     Route: 042
     Dates: start: 20180919, end: 20180919
  2. AZANTAC [Suspect]
     Active Substance: RANITIDINE HYDROCHLORIDE
     Indication: ALLERGY PROPHYLAXIS
     Dosage: 50 MILLIGRAM, CYCLE
     Route: 042
     Dates: start: 20180919, end: 20180919
  3. DEXAMETHASONE MYLAN [Suspect]
     Active Substance: DEXAMETHASONE
     Indication: ALLERGY PROPHYLAXIS
     Dosage: 8 MILLIGRAM, CYCLE
     Route: 042
     Dates: start: 20180919, end: 20180919

REACTIONS (3)
  - Erythema [Recovered/Resolved]
  - Back pain [Recovered/Resolved]
  - Hypersensitivity [Recovered/Resolved]

NARRATIVE: CASE EVENT DATE: 20180919
